FAERS Safety Report 6193605-1 (Version None)
Quarter: 2009Q2

REPORT INFORMATION
  Report Type: 
  Country: None (occurrence: None)
  Receive Date: 20090518
  Receipt Date: 20090508
  Transmission Date: 20091009
  Serious: Yes (Hospitalization, Other)
  Sender: FDA-Public Use
  Company Number: US-AMGEN-KDL343208

PATIENT
  Sex: Male

DRUGS (2)
  1. VECTIBIX [Suspect]
     Indication: COLORECTAL CANCER
     Dates: start: 20070813, end: 20071210
  2. CETUXIMAB [Concomitant]

REACTIONS (6)
  - COLON CANCER [None]
  - GASTROINTESTINAL STOMA COMPLICATION [None]
  - LIVER DISORDER [None]
  - MALIGNANT NEOPLASM PROGRESSION [None]
  - SKIN ULCER [None]
  - TREATMENT FAILURE [None]
